FAERS Safety Report 20296678 (Version 1)
Quarter: 2022Q1

REPORT INFORMATION
  Report Type: Spontaneous
  Country: DE (occurrence: DE)
  Receive Date: 20220105
  Receipt Date: 20220105
  Transmission Date: 20220423
  Serious: Yes (Hospitalization, Other)
  Sender: FDA-Public Use
  Company Number: DE-ADRED-05761-01

PATIENT
  Age: 62 Year
  Sex: Female
  Weight: 90 kg

DRUGS (5)
  1. GEMCITABINE [Suspect]
     Active Substance: GEMCITABINE
     Indication: Product used for unknown indication
     Dosage: 2364 MG, ON JUNE 2ND, SOLUTION FOR INJECTION / INFUSION, UNK
     Route: 042
  2. CISPLATIN [Suspect]
     Active Substance: CISPLATIN
     Indication: Product used for unknown indication
     Dosage: UNK
     Route: 042
  3. ACC long 600mg [Concomitant]
     Indication: Product used for unknown indication
     Dosage: UNK
     Route: 048
  4. Clexane 8000I.E. (80mg)/0,8ml Injektionslosung [Concomitant]
     Indication: Product used for unknown indication
     Dosage: UNK
     Route: 058
  5. ONDANSETRON [Concomitant]
     Active Substance: ONDANSETRON
     Indication: Product used for unknown indication
     Dosage: UNK
     Route: 048

REACTIONS (5)
  - Malaise [Recovering/Resolving]
  - Flank pain [Recovering/Resolving]
  - Hypotension [Recovering/Resolving]
  - Pyrexia [Recovering/Resolving]
  - Urosepsis [Recovering/Resolving]
